FAERS Safety Report 7795777-1 (Version None)
Quarter: 2011Q4

REPORT INFORMATION
  Report Type: 
  Country: None (occurrence: None)
  Receive Date: 20111004
  Receipt Date: 20110923
  Transmission Date: 20120403
  Serious: Yes (Other)
  Sender: FDA-Public Use
  Company Number: US-BAYER-2011-028619

PATIENT
  Age: 26 Year
  Sex: Female

DRUGS (4)
  1. YASMIN [Suspect]
     Dosage: UNK
     Dates: start: 20051001, end: 20060401
  2. VICODIN [Concomitant]
     Dosage: UNK
     Dates: start: 20070413
  3. FLEXERIL [Concomitant]
  4. LOVENOX [Concomitant]
     Dosage: UNK
     Dates: start: 20070413

REACTIONS (5)
  - PULMONARY EMBOLISM [None]
  - EMOTIONAL DISTRESS [None]
  - INJURY [None]
  - PAIN [None]
  - ANXIETY [None]
